FAERS Safety Report 5642123-5 (Version None)
Quarter: 2008Q1

REPORT INFORMATION
  Report Type: 
  Country: None (occurrence: None)
  Receive Date: 20080227
  Receipt Date: 20080221
  Transmission Date: 20080703
  Serious: Yes (Life-Threatening)
  Sender: FDA-Public Use
  Company Number: JP-MERCK-0802USA04828

PATIENT
  Age: 81 Year
  Sex: Male

DRUGS (5)
  1. HYZAAR [Suspect]
     Indication: HYPERTENSION
     Route: 048
     Dates: start: 20080201
  2. NORVASC [Concomitant]
     Indication: HYPERTENSION
     Route: 048
  3. OLMESARTAN MEDOXOMIL [Concomitant]
     Route: 048
     Dates: end: 20080131
  4. MERCAZOLE [Concomitant]
     Indication: BASEDOW'S DISEASE
     Route: 065
  5. CYANOCOBALAMIN [Concomitant]
     Route: 065

REACTIONS (1)
  - RHABDOMYOLYSIS [None]
